FAERS Safety Report 9685631 (Version 2)
Quarter: 2014Q2

REPORT INFORMATION
  Report Type: Spontaneous
  Country: US (occurrence: US)
  Receive Date: 20131113
  Receipt Date: 20140509
  Transmission Date: 20141212
  Serious: Yes (Hospitalization)
  Sender: FDA-Public Use
  Company Number: US-GLAXOSMITHKLINE-A1022997A

PATIENT
  Age: 53 Year
  Sex: Male

DRUGS (1)
  1. COREG [Suspect]
     Indication: CARDIAC FAILURE
     Dosage: 12.5MG UNKNOWN
     Route: 065
     Dates: start: 20110504

REACTIONS (2)
  - Treatment noncompliance [Unknown]
  - Ear disorder [Unknown]
